FAERS Safety Report 11026501 (Version 1)
Quarter: 2015Q2

REPORT INFORMATION
  Report Type: Spontaneous
  Country: US (occurrence: US)
  Receive Date: 20150414
  Receipt Date: 20150414
  Transmission Date: 20150821
  Serious: No
  Sender: FDA-Public Use
  Company Number: US-CUBIST PHARMACEUTICALS, INC.-2015CBST000245

PATIENT

DRUGS (9)
  1. ZERBAXA [Suspect]
     Active Substance: CEFTOLOZANE SULFATE\TAZOBACTAM SODIUM
     Indication: ESCHERICHIA INFECTION
  2. COLISTIN [Concomitant]
     Active Substance: COLISTIN
     Indication: ESCHERICHIA INFECTION
  3. COLISTIN [Concomitant]
     Active Substance: COLISTIN
     Indication: ABDOMINAL WALL ABSCESS
  4. ZERBAXA [Suspect]
     Active Substance: CEFTOLOZANE SULFATE\TAZOBACTAM SODIUM
     Indication: RESPIRATORY TRACT INFECTION
     Dosage: 4.5 G, 2 DOSES
     Route: 042
     Dates: start: 20150116, end: 20150116
  5. ZERBAXA [Suspect]
     Active Substance: CEFTOLOZANE SULFATE\TAZOBACTAM SODIUM
     Indication: ABDOMINAL WALL ABSCESS
  6. ZERBAXA [Suspect]
     Active Substance: CEFTOLOZANE SULFATE\TAZOBACTAM SODIUM
     Indication: PSEUDOMONAS INFECTION
     Dosage: 3 G, Q8H
     Route: 042
     Dates: start: 20150115, end: 20150128
  7. ZERBAXA [Suspect]
     Active Substance: CEFTOLOZANE SULFATE\TAZOBACTAM SODIUM
     Indication: OFF LABEL USE
  8. COLISTIN [Concomitant]
     Active Substance: COLISTIN
     Indication: PSEUDOMONAS INFECTION
     Dosage: UNK UNK, UNK
     Route: 065
  9. COLISTIN [Concomitant]
     Active Substance: COLISTIN
     Indication: RESPIRATORY TRACT INFECTION

REACTIONS (4)
  - Circumstance or information capable of leading to medication error [Unknown]
  - Off label use [Unknown]
  - Incorrect dose administered [Unknown]
  - Product quality issue [Unknown]

NARRATIVE: CASE EVENT DATE: 20150116
